FAERS Safety Report 16600757 (Version 2)
Quarter: 2019Q3

REPORT INFORMATION
  Report Type: Report from Study
  Country: BR (occurrence: BR)
  Receive Date: 20190719
  Receipt Date: 20190910
  Transmission Date: 20191004
  Serious: Yes (Hospitalization, Other)
  Sender: FDA-Public Use
  Company Number: PHHY2019BR156894

PATIENT
  Sex: Male

DRUGS (6)
  1. REVOLADE [Suspect]
     Active Substance: ELTROMBOPAG
     Dosage: 50 MG, QD (IN THE AFTERNOON)
     Route: 065
  2. BETAMETHASONE. [Suspect]
     Active Substance: BETAMETHASONE
     Indication: PRODUCT USED FOR UNKNOWN INDICATION
     Dosage: UNK
     Route: 065
  3. CLONIDINA [Concomitant]
     Indication: PRODUCT USED FOR UNKNOWN INDICATION
     Dosage: 1 MG, (ABOUT 4 YEARS)
     Route: 065
  4. REVOLADE [Suspect]
     Active Substance: ELTROMBOPAG
     Indication: AUTOIMMUNE DISORDER
     Dosage: 25 MG, UNK
     Route: 065
  5. RITALIN LA [Suspect]
     Active Substance: METHYLPHENIDATE HYDROCHLORIDE
     Indication: PSYCHOMOTOR HYPERACTIVITY
     Dosage: 20 MG, UNK
     Route: 065
     Dates: start: 2014
  6. RITALINA [Suspect]
     Active Substance: METHYLPHENIDATE HYDROCHLORIDE
     Indication: PRODUCT USED FOR UNKNOWN INDICATION
     Dosage: UNK
     Route: 065

REACTIONS (17)
  - Pruritus [Unknown]
  - Arthralgia [Recovering/Resolving]
  - Pain [Recovering/Resolving]
  - Condition aggravated [Unknown]
  - Influenza [Recovering/Resolving]
  - Hyperaesthesia [Unknown]
  - Pain of skin [Not Recovered/Not Resolved]
  - Platelet count decreased [Recovering/Resolving]
  - Cough [Recovering/Resolving]
  - Gait inability [Recovering/Resolving]
  - Pyrexia [Unknown]
  - Eosinophil count increased [Unknown]
  - Sneezing [Recovering/Resolving]
  - Drug ineffective [Unknown]
  - Eye pruritus [Unknown]
  - Hypersensitivity [Recovering/Resolving]
  - Blood disorder [Unknown]
